FAERS Safety Report 7312885-X (Version None)
Quarter: 2011Q1

REPORT INFORMATION
  Report Type: 
  Country: None (occurrence: None)
  Receive Date: 20110224
  Receipt Date: 20110208
  Transmission Date: 20110831
  Serious: Yes (Other)
  Sender: FDA-Public Use
  Company Number: US-ROCHE-746511

PATIENT
  Sex: Female

DRUGS (2)
  1. PEGASYS [Suspect]
     Indication: HEPATITIS C
     Dosage: FORM: PRE-FILLED SYRINGE
     Route: 058
     Dates: start: 20100307, end: 20110125
  2. COPEGUS [Suspect]
     Indication: HEPATITIS C
     Dosage: DIVIDED DOSES
     Route: 065
     Dates: start: 20100307, end: 20110125

REACTIONS (9)
  - BACK PAIN [None]
  - PYREXIA [None]
  - PRODUCTIVE COUGH [None]
  - DYSPNOEA [None]
  - OROPHARYNGEAL PAIN [None]
  - HEADACHE [None]
  - PHARYNGEAL POLYP [None]
  - PAIN IN EXTREMITY [None]
  - CHROMATURIA [None]
